FAERS Safety Report 23648272 (Version 1)
Quarter: 2024Q1

REPORT INFORMATION
  Report Type: Report from Study
  Country: IE (occurrence: IE)
  Receive Date: 20240319
  Receipt Date: 20240319
  Transmission Date: 20240409
  Serious: Yes (Hospitalization)
  Sender: FDA-Public Use
  Company Number: IE-MYLANLABS-2024M1025472

PATIENT
  Sex: Female

DRUGS (8)
  1. PHENYTOIN [Suspect]
     Active Substance: PHENYTOIN
     Indication: Partial seizures
     Dosage: UNK
     Route: 065
  2. PHENYTOIN [Suspect]
     Active Substance: PHENYTOIN
     Dosage: UNK (DOSE DECREASED)
     Route: 065
  3. CENOBAMATE [Concomitant]
     Active Substance: CENOBAMATE
     Indication: Partial seizures
     Dosage: 12.5 MILLIGRAM, QD (FURTHER INCREASED AT 2 WEEK INTERVALS)
     Route: 065
  4. CENOBAMATE [Concomitant]
     Active Substance: CENOBAMATE
     Dosage: 25 MILLIGRAM, QD (WHICH WAS FURTHER INCREASED AT 2 WEEK)
     Route: 065
  5. CENOBAMATE [Concomitant]
     Active Substance: CENOBAMATE
     Dosage: 50 MILLIGRAM, QD (FURTHER INCREASED AT 2 WEEK)
     Route: 065
  6. CENOBAMATE [Concomitant]
     Active Substance: CENOBAMATE
     Dosage: 100 MILLIGRAM, QD (FURTHER INCREASED AT 2 WEEK INTERVALS)
     Route: 065
  7. CENOBAMATE [Concomitant]
     Active Substance: CENOBAMATE
     Dosage: 150 MILLIGRAM, QD (FURTHER INCREASED AT 2 WEEK INTERVALS)
     Route: 065
  8. CENOBAMATE [Concomitant]
     Active Substance: CENOBAMATE
     Dosage: 200 MILLIGRAM, QD
     Route: 065

REACTIONS (4)
  - Toxicity to various agents [Recovered/Resolved]
  - Ataxia [Recovered/Resolved]
  - Diplopia [Recovered/Resolved]
  - Nausea [Recovered/Resolved]
